FAERS Safety Report 9753274 (Version 2)
Quarter: 2013Q4

REPORT INFORMATION
  Report Type: Spontaneous
  Country: NZ (occurrence: NZ)
  Receive Date: 20131213
  Receipt Date: 20131231
  Transmission Date: 20140711
  Serious: Yes (Hospitalization)
  Sender: FDA-Public Use
  Company Number: NZ-B.I. PHARMACEUTICALS,INC./RIDGEFIELD-2013-BI-41232AU

PATIENT
  Age: 66 Year
  Sex: Female

DRUGS (14)
  1. SPIRIVA INHALATION POWDER [Suspect]
     Indication: CHRONIC OBSTRUCTIVE PULMONARY DISEASE
     Dosage: 18 MCG
     Dates: start: 20120803
  2. SPIRIVA INHALATION POWDER [Suspect]
     Indication: ASTHMA
  3. RHUPH20/TRASTUZUMAB(RHUPH20, TRASTUZUMAB)(SO [Suspect]
     Indication: BREAST CANCER
     Dosage: 28.5714 MG
     Route: 058
     Dates: start: 20130417
  4. SYMBICORT [Suspect]
     Indication: CHRONIC OBSTRUCTIVE PULMONARY DISEASE
     Dates: start: 2004
  5. SYMBICORT [Suspect]
     Indication: ASTHMA
  6. OMEPRAZOLE [Concomitant]
     Dates: start: 2003
  7. VENTOLIN [Concomitant]
     Dates: start: 2004
  8. RANITIDINE [Concomitant]
     Dates: start: 20130615
  9. LORATADINE [Concomitant]
     Dosage: DOSE PER APPLICATION AND DAILY DOSE: 0-10 MG
     Dates: start: 20130709
  10. PARACETAMOL [Concomitant]
     Dates: start: 201305
  11. BENDROFLUMETHIAZIDE [Concomitant]
     Dates: start: 20121119
  12. ZOPICLONE [Concomitant]
     Dates: start: 20131115, end: 20131116
  13. IBUPROFEN [Concomitant]
     Dates: start: 20131116, end: 20131116
  14. CODEINE [Concomitant]
     Dates: start: 20131116, end: 20131116

REACTIONS (1)
  - Lobar pneumonia [Not Recovered/Not Resolved]
